FAERS Safety Report 8610578-X (Version None)
Quarter: 2012Q3

REPORT INFORMATION
  Report Type: 
  Country: None (occurrence: None)
  Receive Date: 20120822
  Receipt Date: 20120815
  Transmission Date: 20120928
  Serious: Yes (Other)
  Sender: FDA-Public Use
  Company Number: BR-US-EMD SERONO, INC.-7155071

PATIENT
  Sex: Female

DRUGS (6)
  1. REBIF [Suspect]
     Indication: PRODUCT USED FOR UNKNOWN INDICATION
     Dates: start: 20120401
  2. AMLODIPINE [Suspect]
     Indication: AUTOIMMUNE DISORDER
  3. PREDNISONE TAB [Suspect]
     Indication: AUTOIMMUNE DISORDER
  4. METHOTREXATE [Suspect]
     Indication: AUTOIMMUNE DISORDER
  5. HYDROXYCHLOROQUINE SULFATE [Suspect]
     Indication: AUTOIMMUNE DISORDER
  6. SPIRONOLACTONE [Suspect]
     Indication: AUTOIMMUNE DISORDER

REACTIONS (4)
  - SKIN DISCOLOURATION [None]
  - BLOOD THYROID STIMULATING HORMONE INCREASED [None]
  - AUTOIMMUNE DISORDER [None]
  - INJECTION SITE NODULE [None]
